FAERS Safety Report 16878922 (Version 6)
Quarter: 2021Q2

REPORT INFORMATION
  Report Type: Report from Study
  Country: AU (occurrence: AU)
  Receive Date: 20191002
  Receipt Date: 20210512
  Transmission Date: 20210716
  Serious: Yes (Hospitalization)
  Sender: FDA-Public Use
  Company Number: AU-ROCHE-2378752

PATIENT
  Age: 67 Year
  Sex: Male
  Weight: 69.2 kg

DRUGS (44)
  1. VENTOLIN [Concomitant]
     Active Substance: ALBUTEROL SULFATE
     Indication: ASTHMA
     Dosage: 2 PUFF
     Route: 055
  2. TRANEXAMIC ACID. [Concomitant]
     Active Substance: TRANEXAMIC ACID
     Route: 048
     Dates: start: 20171024
  3. MOVICOL [Concomitant]
     Active Substance: POLYETHYLENE GLYCOL 3350\POTASSIUM CHLORIDE\SODIUM BICARBONATE\SODIUM CHLORIDE
     Indication: CONSTIPATION
     Route: 048
     Dates: start: 20190808
  4. OXYCODONE [Concomitant]
     Active Substance: OXYCODONE
     Route: 048
     Dates: start: 20190815, end: 20190815
  5. GLYCERYL TRINITRATE [Concomitant]
     Active Substance: NITROGLYCERIN
     Route: 042
     Dates: start: 20190813, end: 20190813
  6. ALBUMIN [Concomitant]
     Active Substance: ALBUMIN HUMAN
     Indication: HYPOALBUMINAEMIA
     Route: 042
     Dates: start: 20190820, end: 20190820
  7. CRYOPRECIPITATE [Concomitant]
     Active Substance: CRYOPRECIPITATED ANTIHEMOPHILIC FACTOR (HUMAN)
     Route: 042
     Dates: start: 20190820, end: 20190820
  8. MARCAINE [Concomitant]
     Active Substance: BUPIVACAINE HYDROCHLORIDE
     Route: 058
     Dates: start: 20190909, end: 20190909
  9. DOCUSATE;SENNA [Concomitant]
     Active Substance: DOCUSATE\SENNOSIDES
     Indication: CONSTIPATION
     Route: 048
     Dates: start: 20190808
  10. PARACETAMOL [Concomitant]
     Active Substance: ACETAMINOPHEN
     Indication: ANALGESIC THERAPY
     Route: 048
     Dates: start: 20190807
  11. OXYCODONE [Concomitant]
     Active Substance: OXYCODONE
     Indication: ANALGESIC THERAPY
     Route: 048
     Dates: start: 20190807, end: 20190807
  12. OXYCODONE [Concomitant]
     Active Substance: OXYCODONE
     Route: 048
     Dates: start: 20190807, end: 20190808
  13. OXYCODONE [Concomitant]
     Active Substance: OXYCODONE
     Route: 048
     Dates: start: 20190815, end: 20190815
  14. MIDAZOLAM. [Concomitant]
     Active Substance: MIDAZOLAM
     Indication: ANGIOCARDIOGRAM
     Route: 042
     Dates: start: 20190813, end: 20190813
  15. MIDAZOLAM. [Concomitant]
     Active Substance: MIDAZOLAM
     Route: 042
     Dates: start: 20190909, end: 20190909
  16. LACTULOSE. [Concomitant]
     Active Substance: LACTULOSE
     Indication: CONSTIPATION
     Dates: start: 20190822, end: 20190822
  17. TRAMADOL ER [Concomitant]
     Active Substance: TRAMADOL HYDROCHLORIDE
     Indication: HAEMOPHILIC ARTHROPATHY
  18. FENTANYL. [Concomitant]
     Active Substance: FENTANYL
     Indication: PAIN MANAGEMENT
     Route: 042
     Dates: start: 20190820, end: 20190828
  19. ALBUMIN [Concomitant]
     Active Substance: ALBUMIN HUMAN
     Route: 048
     Dates: start: 20190820, end: 20190820
  20. PLATELETS [Concomitant]
     Active Substance: HUMAN PLATELET, ALLOGENIC
  21. GLUCOSAMINE AND CHONDROITIN [Concomitant]
     Active Substance: CHONDROITIN SULFATE (BOVINE)\GLUCOSAMINE HYDROCHLORIDE
     Indication: HAEMOPHILIC ARTHROPATHY
     Route: 048
  22. PANTOPRAZOLE [Concomitant]
     Active Substance: PANTOPRAZOLE
     Indication: DIVERTICULUM
     Route: 048
     Dates: start: 20150106, end: 20200510
  23. TRAMADOL. [Concomitant]
     Active Substance: TRAMADOL
     Indication: PAIN IN EXTREMITY
     Route: 048
     Dates: start: 20190429, end: 20190806
  24. OXYCODONE [Concomitant]
     Active Substance: OXYCODONE
     Route: 048
     Dates: start: 20190816, end: 20190816
  25. CEPHAZOLIN [Concomitant]
     Active Substance: CEFAZOLIN
     Route: 065
     Dates: start: 20190909, end: 20190909
  26. CHONDROITIN [Concomitant]
     Active Substance: CHONDROITIN
     Indication: HAEMARTHROSIS
     Route: 048
  27. HEPARIN [Concomitant]
     Active Substance: HEPARIN SODIUM
     Indication: ANGIOCARDIOGRAM
     Route: 042
     Dates: start: 20190813
  28. LIGNOCAINE [Concomitant]
     Active Substance: LIDOCAINE HYDROCHLORIDE
     Route: 058
     Dates: start: 20190909, end: 20190909
  29. FISH OIL [Concomitant]
     Active Substance: FISH OIL
     Indication: HAEMOPHILIC ARTHROPATHY
     Route: 048
  30. TEMAZEPAM. [Concomitant]
     Active Substance: TEMAZEPAM
     Indication: INSOMNIA
     Route: 048
     Dates: start: 20170304
  31. TRAMADOL. [Concomitant]
     Active Substance: TRAMADOL
     Indication: HAEMOPHILIC ARTHROPATHY
     Route: 048
     Dates: start: 20190807, end: 20190819
  32. OXYCODONE [Concomitant]
     Active Substance: OXYCODONE
     Route: 048
     Dates: start: 20190808, end: 20190814
  33. FRESH FROZEN PLASMA [Concomitant]
     Active Substance: HUMAN PLASMA
  34. EMICIZUMAB. [Suspect]
     Active Substance: EMICIZUMAB
     Indication: HAEMOPHILIA A WITHOUT INHIBITORS
     Dosage: ON 01/AUG/2019, HE RECEIVED MOST RECENT DOSE OF EMICIZUMAB 1.38 ML PRIOR TO AE ONSET WAS TAKEN.
     Route: 058
     Dates: start: 20161027
  35. ENDONE [Concomitant]
     Active Substance: OXYCODONE HYDROCHLORIDE
     Indication: HAEMOPHILIC ARTHROPATHY
     Route: 048
  36. CETIRIZINE [Concomitant]
     Active Substance: CETIRIZINE HYDROCHLORIDE
     Indication: RASH
     Route: 048
     Dates: start: 20170804
  37. TRAMADOL. [Concomitant]
     Active Substance: TRAMADOL
     Route: 048
     Dates: start: 20190810, end: 20190810
  38. OXYCODONE [Concomitant]
     Active Substance: OXYCODONE
     Route: 048
     Dates: start: 20190819, end: 20190819
  39. FENTANYL. [Concomitant]
     Active Substance: FENTANYL
     Route: 042
     Dates: start: 20190909, end: 20190909
  40. CEPHAZOLIN [Concomitant]
     Active Substance: CEFAZOLIN
     Route: 065
     Dates: start: 20190909, end: 20190909
  41. IRBESARTAN. [Concomitant]
     Active Substance: IRBESARTAN
     Indication: HYPERTENSION
     Route: 048
     Dates: start: 20190807, end: 20190807
  42. HYDROCORTISONE. [Concomitant]
     Active Substance: HYDROCORTISONE
     Indication: RASH
     Route: 061
     Dates: start: 201705
  43. ONDANSETRON [Concomitant]
     Active Substance: ONDANSETRON
     Indication: NAUSEA
     Route: 048
     Dates: start: 20190808, end: 20190808
  44. RED BLOOD CELLS [Concomitant]
     Active Substance: HUMAN RED BLOOD CELL
     Dosage: 1 U
     Route: 042
     Dates: start: 20190820, end: 20190820

REACTIONS (1)
  - Acute myocardial infarction [Recovered/Resolved with Sequelae]

NARRATIVE: CASE EVENT DATE: 20190809
